FAERS Safety Report 9643309 (Version 1)
Quarter: 2013Q4

REPORT INFORMATION
  Report Type: Spontaneous
  Country: US (occurrence: US)
  Receive Date: 20131024
  Receipt Date: 20131024
  Transmission Date: 20140711
  Serious: Yes (Life-Threatening, Other)
  Sender: FDA-Public Use
  Company Number: US-PFIZER INC-2013300380

PATIENT
  Age: 55 Year
  Sex: Male
  Weight: 86.17 kg

DRUGS (7)
  1. XANAX [Suspect]
     Indication: ANXIETY
     Dosage: 0.5 MG OR 1 MG
     Dates: start: 2000
  2. XANAX [Suspect]
     Dosage: 2 MG, UNK
     Dates: end: 2012
  3. VALIUM [Suspect]
     Dosage: 10 MG, EVERY 2 DAYS
  4. ADDERALL [Concomitant]
     Indication: ATTENTION DEFICIT/HYPERACTIVITY DISORDER
     Dosage: UNK
  5. CELEXA [Concomitant]
     Indication: DEPRESSION
     Dosage: UNK
  6. AMBIEN [Concomitant]
     Indication: SLEEP DISORDER
     Dosage: UNK, EVERY THREE DAYS
  7. TESTOSTERONE [Concomitant]
     Dosage: UNK

REACTIONS (3)
  - Intervertebral disc protrusion [Unknown]
  - Mental impairment [Unknown]
  - Drug ineffective [Unknown]
